FAERS Safety Report 13375135 (Version 1)
Quarter: 2017Q1

REPORT INFORMATION
  Report Type: Spontaneous
  Country: US (occurrence: US)
  Receive Date: 20170327
  Receipt Date: 20170327
  Transmission Date: 20170429
  Serious: Yes (Death)
  Sender: FDA-Public Use
  Company Number: US-BAUSCH-BL-2017-007742

PATIENT
  Sex: Female

DRUGS (1)
  1. XIFAXAN [Suspect]
     Active Substance: RIFAXIMIN
     Indication: ENCEPHALOPATHY
     Route: 048
     Dates: start: 2014, end: 201703

REACTIONS (4)
  - Hepatic cirrhosis [Fatal]
  - Off label use [Unknown]
  - Internal haemorrhage [Fatal]
  - Product difficult to swallow [Unknown]
